FAERS Safety Report 4313802-7 (Version None)
Quarter: 2004Q1

REPORT INFORMATION
  Report Type: 
  Country: None (occurrence: None)
  Receive Date: 20040304
  Receipt Date: 20031204
  Transmission Date: 20041129
  Serious: Yes (Other)
  Sender: FDA-Public Use
  Company Number: 2003122283

PATIENT
  Sex: 0

DRUGS (1)
  1. GEODON [Suspect]
     Indication: ILL-DEFINED DISORDER

REACTIONS (1)
  - DYSTONIA [None]
